FAERS Safety Report 13390759 (Version 1)
Quarter: 2017Q1

REPORT INFORMATION
  Report Type: Spontaneous
  Country: US (occurrence: US)
  Receive Date: 20170331
  Receipt Date: 20170331
  Transmission Date: 20170429
  Serious: No
  Sender: FDA-Public Use
  Company Number: None

PATIENT

DRUGS (2)
  1. STERILE WATER FOR INJECTION [Suspect]
     Active Substance: WATER
     Dosage: DOSAGE FORM - INJECTABLE?ADM. ROUTE - INJECTION?TYPE - SINGLE DOSE?SIZE - 50 ML
  2. SODIUM ACETATE 40MEQ/20ML [Suspect]
     Active Substance: SODIUM ACETATE
     Dosage: DOSAGE FORM - INJECTABLE?ADM ROUTE - INJECTION?TYPE - SINGLE DOSE VIAL?SIZE - 20 ML

REACTIONS (1)
  - Product packaging confusion [None]
